FAERS Safety Report 12949844 (Version 1)
Quarter: 2016Q4

REPORT INFORMATION
  Report Type: Spontaneous
  Country: US (occurrence: US)
  Receive Date: 20161117
  Receipt Date: 20161117
  Transmission Date: 20170207
  Serious: Yes (Other)
  Sender: FDA-Public Use
  Company Number: US-BAYER-2016-215178

PATIENT
  Age: 25 Year
  Sex: Male

DRUGS (3)
  1. KOGENATE FS [Suspect]
     Active Substance: ANTIHEMOPHILIC FACTOR, HUMAN RECOMBINANT
     Indication: PROPHYLAXIS
     Dosage: UNK UNK, TIW
     Dates: end: 2016
  2. KOVALTRY [Suspect]
     Active Substance: ANTIHEMOPHILIC FACTOR, HUMAN RECOMBINANT
     Indication: PROPHYLAXIS
     Dosage: 3000 IU, TIW
     Route: 042
     Dates: start: 2016
  3. KOVALTRY [Suspect]
     Active Substance: ANTIHEMOPHILIC FACTOR, HUMAN RECOMBINANT
     Indication: PROPHYLAXIS
     Dosage: 3000 IU WHEN HE HAS A BLEED

REACTIONS (5)
  - Fall [None]
  - Drug ineffective [None]
  - Haemarthrosis [Recovered/Resolved]
  - Haemarthrosis [None]
  - Contusion [None]

NARRATIVE: CASE EVENT DATE: 2016
